FAERS Safety Report 4484544-2 (Version None)
Quarter: 2004Q3

REPORT INFORMATION
  Report Type: 
  Country: None (occurrence: None)
  Receive Date: 20040921
  Receipt Date: 20031125
  Transmission Date: 20050211
  Serious: Yes (Hospitalization)
  Sender: FDA-Public Use
  Company Number: 163-20785-03110556(0)

PATIENT
  Age: 64 Year
  Sex: Male

DRUGS (4)
  1. THALOMID [Suspect]
     Indication: MYELODYSPLASTIC SYNDROME
     Dosage: 50 + 100 MG, AT BEDTIME, ORAL
     Route: 048
     Dates: start: 20030827, end: 20030101
  2. THALOMID [Suspect]
     Indication: MYELOPROLIFERATIVE DISORDER
     Dosage: 50 + 100 MG, AT BEDTIME, ORAL
     Route: 048
     Dates: start: 20030827, end: 20030101
  3. THALOMID [Suspect]
     Indication: MYELODYSPLASTIC SYNDROME
     Dosage: 50 + 100 MG, AT BEDTIME, ORAL
     Route: 048
     Dates: start: 20030101
  4. THALOMID [Suspect]
     Indication: MYELOPROLIFERATIVE DISORDER
     Dosage: 50 + 100 MG, AT BEDTIME, ORAL
     Route: 048
     Dates: start: 20030101

REACTIONS (2)
  - CONDITION AGGRAVATED [None]
  - DYSPNOEA [None]
